APPROVED DRUG PRODUCT: THIOTEPA
Active Ingredient: THIOTEPA
Strength: 15MG/VIAL **Federal Register determination that product was not discontinued or withdrawn for safety or effectiveness reasons**
Dosage Form/Route: INJECTABLE;INJECTION
Application: A075730 | Product #001
Applicant: TEVA PARENTERAL MEDICINES INC
Approved: Apr 20, 2001 | RLD: No | RS: No | Type: DISCN